FAERS Safety Report 14124970 (Version 1)
Quarter: 2017Q4

REPORT INFORMATION
  Report Type: Spontaneous
  Country: US (occurrence: US)
  Receive Date: 20171025
  Receipt Date: 20171025
  Transmission Date: 20180321
  Serious: Yes (Other)
  Sender: FDA-Public Use
  Company Number: US-CROWN LABORATORIES, INC.-2031440

PATIENT
  Age: 68 Year
  Sex: Female
  Weight: 67.27 kg

DRUGS (2)
  1. TRIAMCINOLONE ACETONIDE, USP [Suspect]
     Active Substance: TRIAMCINOLONE ACETONIDE
     Indication: RASH
     Route: 061
     Dates: end: 20170930
  2. CORTISONE MAXIMUM STRENGTH [Suspect]
     Active Substance: HYDROCORTISONE
     Route: 061
     Dates: start: 20170928, end: 20170929

REACTIONS (5)
  - Nausea [None]
  - Condition aggravated [None]
  - Vomiting [None]
  - Chest pain [None]
  - Rash [Recovering/Resolving]

NARRATIVE: CASE EVENT DATE: 20170928
